FAERS Safety Report 24583273 (Version 2)
Quarter: 2024Q4

REPORT INFORMATION
  Report Type: Report from Study
  Country: NL (occurrence: NL)
  Receive Date: 20241106
  Receipt Date: 20241115
  Transmission Date: 20250115
  Serious: No
  Sender: CHIESI
  Company Number: NL-CHIESI-2024CHF07140

PATIENT
  Sex: Female

DRUGS (1)
  1. TOBRAMYCIN [Suspect]
     Active Substance: TOBRAMYCIN\TOBRAMYCIN SULFATE
     Indication: Bronchial disorder
     Dosage: UNK, BID

REACTIONS (1)
  - Off label use [Recovered/Resolved]
